FAERS Safety Report 9377478 (Version 1)
Quarter: 2013Q3

REPORT INFORMATION
  Report Type: Spontaneous
  Country: US (occurrence: US)
  Receive Date: 20130701
  Receipt Date: 20130701
  Transmission Date: 20140515
  Serious: No
  Sender: FDA-Public Use
  Company Number: US-PFIZER INC-2013194391

PATIENT
  Age: 72 Year
  Sex: Female
  Weight: 78.01 kg

DRUGS (4)
  1. LYRICA [Suspect]
     Indication: NERVE COMPRESSION
     Dosage: 50 MG, 2X/DAY
     Dates: start: 20130626
  2. LYRICA [Suspect]
     Indication: NEUROPATHY PERIPHERAL
  3. LYRICA [Suspect]
     Indication: SCIATICA
  4. LYRICA [Suspect]
     Indication: NEURALGIA

REACTIONS (5)
  - Off label use [Unknown]
  - Weight increased [Unknown]
  - Drug ineffective [Unknown]
  - Swelling [Unknown]
  - Dizziness [Unknown]
